FAERS Safety Report 10959879 (Version 1)
Quarter: 2015Q1

REPORT INFORMATION
  Report Type: Spontaneous
  Country: US (occurrence: None)
  Receive Date: 20150326
  Receipt Date: 20150326
  Transmission Date: 20150721
  Serious: Yes (Hospitalization)
  Sender: FDA-Public Use
  Company Number: None

PATIENT
  Age: 65 Year
  Sex: Female
  Weight: 63 kg

DRUGS (1)
  1. INTRON A [Suspect]
     Active Substance: INTERFERON ALFA-2B
     Dosage: TOTAL DOSE ADMINISTERED 187 MU
     Dates: end: 20140103

REACTIONS (6)
  - Gait disturbance [None]
  - Nuclear magnetic resonance imaging brain abnormal [None]
  - Vertigo [None]
  - Dysstasia [None]
  - Dizziness [None]
  - Retinopathy [None]

NARRATIVE: CASE EVENT DATE: 20140104
